FAERS Safety Report 9437773 (Version 2)
Quarter: 2013Q3

REPORT INFORMATION
  Report Type: Report from Study
  Country: JP (occurrence: JP)
  Receive Date: 20130802
  Receipt Date: 20130909
  Transmission Date: 20140515
  Serious: Yes (Death)
  Sender: FDA-Public Use
  Company Number: JP-GENZYME-THYM-1003551

PATIENT
  Age: 81 Year
  Sex: Male
  Weight: 58 kg

DRUGS (5)
  1. THYMOGLOBULIN [Suspect]
     Indication: APLASTIC ANAEMIA
     Dosage: 130 MG, QD
     Route: 042
     Dates: start: 20120925, end: 20120929
  2. FIRSTCIN [Concomitant]
     Indication: PROPHYLAXIS
     Dosage: UNK
     Route: 065
     Dates: start: 20120925, end: 20121013
  3. SOL-MELCORT [Concomitant]
     Indication: PROPHYLAXIS
     Dosage: UNK
     Route: 065
     Dates: start: 20120925, end: 20120929
  4. GRAN [Concomitant]
     Indication: APLASTIC ANAEMIA
     Dosage: UNK
     Route: 065
     Dates: start: 20120813, end: 20121013
  5. NEORAL [Concomitant]
     Indication: PROPHYLAXIS
     Dosage: UNK
     Route: 065
     Dates: start: 20120829, end: 20121013

REACTIONS (2)
  - Aplastic anaemia [Fatal]
  - Pneumonia bacterial [Fatal]
